FAERS Safety Report 4951734-1 (Version None)
Quarter: 2006Q1

REPORT INFORMATION
  Report Type: 
  Country: None (occurrence: None)
  Receive Date: 20060323
  Receipt Date: 20050901
  Transmission Date: 20060701
  Serious: Yes (Hospitalization)
  Sender: FDA-Public Use
  Company Number: BR-GLAXOSMITHKLINE-B0392625A

PATIENT
  Age: 25 Year
  Sex: Female
  Weight: 91.8 kg

DRUGS (4)
  1. HPV 16-18 [Suspect]
     Route: 030
     Dates: start: 20050702, end: 20050702
  2. AMOXICILLIN [Suspect]
     Dosage: .5G THREE TIMES PER DAY
     Route: 048
     Dates: start: 20050629, end: 20050705
  3. FEMIANE [Suspect]
     Dosage: 1UNIT PER DAY
     Route: 048
     Dates: start: 20050610, end: 20050823
  4. NIMESULIDE [Concomitant]
     Dosage: 100MG TWICE PER DAY
     Route: 048
     Dates: start: 20050630, end: 20050703

REACTIONS (4)
  - ERYTHEMA NODOSUM [None]
  - PAIN [None]
  - PYREXIA [None]
  - SKIN LESION [None]
